FAERS Safety Report 8299904-1 (Version None)
Quarter: 2012Q2

REPORT INFORMATION
  Report Type: 
  Country: None (occurrence: None)
  Receive Date: 20120420
  Receipt Date: 20120412
  Transmission Date: 20120825
  Serious: Yes (Hospitalization, Other)
  Sender: FDA-Public Use
  Company Number: US-AMGEN-USASP2012023326

PATIENT
  Age: 59 Year
  Sex: Female

DRUGS (1)
  1. ENBREL [Suspect]
     Indication: RHEUMATOID ARTHRITIS
     Dosage: 50 MG, QWK
     Dates: start: 20101201

REACTIONS (11)
  - CERVICAL SPINAL STENOSIS [None]
  - HAEMORRHAGE [None]
  - FATIGUE [None]
  - HEADACHE [None]
  - VISUAL IMPAIRMENT [None]
  - MEMORY IMPAIRMENT [None]
  - DIABETES MELLITUS [None]
  - MUSCULOSKELETAL DISCOMFORT [None]
  - BLOOD IRON DECREASED [None]
  - CARPAL TUNNEL SYNDROME [None]
  - NERVE ROOT COMPRESSION [None]
